FAERS Safety Report 20454625 (Version 1)
Quarter: 2022Q1

REPORT INFORMATION
  Report Type: Spontaneous
  Country: DE (occurrence: DE)
  Receive Date: 20220210
  Receipt Date: 20220210
  Transmission Date: 20220423
  Serious: Yes (Hospitalization)
  Sender: FDA-Public Use
  Company Number: DE-NOVARTISPH-NVSC2022DE027993

PATIENT
  Age: 75 Year
  Sex: Female

DRUGS (13)
  1. METHOTREXATE [Suspect]
     Active Substance: METHOTREXATE
     Indication: Rheumatoid arthritis
     Dosage: 15 DOSAGE FORM
     Route: 065
     Dates: start: 20110815, end: 20131016
  2. METHOTREXATE [Suspect]
     Active Substance: METHOTREXATE
     Dosage: 7.5 DOSAGE FORM
     Route: 065
     Dates: start: 20140305, end: 20140827
  3. METHOTREXATE [Suspect]
     Active Substance: METHOTREXATE
     Dosage: UNK
     Route: 065
     Dates: start: 20150128, end: 20150902
  4. METHOTREXATE [Suspect]
     Active Substance: METHOTREXATE
     Dosage: 10 DOSAGE FORM
     Route: 001
     Dates: start: 20150902, end: 20160504
  5. METHOTREXATE [Suspect]
     Active Substance: METHOTREXATE
     Dosage: 15 DOSAGE FORM
     Route: 065
     Dates: start: 20160504
  6. HUMIRA [Suspect]
     Active Substance: ADALIMUMAB
     Indication: Product used for unknown indication
     Dosage: UNK
     Route: 058
     Dates: start: 201109, end: 201312
  7. HUMIRA [Suspect]
     Active Substance: ADALIMUMAB
     Dosage: UNK
     Route: 058
     Dates: start: 202102
  8. MABTHERA [Concomitant]
     Active Substance: RITUXIMAB
     Indication: Rheumatoid arthritis
     Dosage: 1000 MG
     Route: 065
     Dates: start: 201706, end: 20171115
  9. MABTHERA [Concomitant]
     Active Substance: RITUXIMAB
     Dosage: 1000 MG
     Route: 065
     Dates: start: 201809, end: 20191023
  10. MABTHERA [Concomitant]
     Active Substance: RITUXIMAB
     Dosage: UNK
     Route: 065
     Dates: start: 20200304
  11. HYDROXYCHLOROQUINE [Concomitant]
     Active Substance: HYDROXYCHLOROQUINE
     Indication: Rheumatoid arthritis
     Dosage: 250 DOSAGE FORM
     Route: 065
     Dates: start: 20150128, end: 20150902
  12. HYDROXYCHLOROQUINE [Concomitant]
     Active Substance: HYDROXYCHLOROQUINE
     Dosage: UNK
     Route: 065
     Dates: start: 20160504, end: 20161104
  13. HYDROXYCHLOROQUINE [Concomitant]
     Active Substance: HYDROXYCHLOROQUINE
     Dosage: UNK
     Route: 065
     Dates: start: 20161104, end: 20171115

REACTIONS (3)
  - Arthritis [Unknown]
  - Femur fracture [Unknown]
  - Pyrexia [Unknown]

NARRATIVE: CASE EVENT DATE: 20210119
